FAERS Safety Report 9550786 (Version 2)
Quarter: 2015Q2

REPORT INFORMATION
  Report Type: Report from Study
  Country: US (occurrence: US)
  Receive Date: 20130924
  Receipt Date: 20150626
  Transmission Date: 20150821
  Serious: Yes (Other)
  Sender: FDA-Public Use
  Company Number: US-SANOFI-AVENTIS-2013SA048093

PATIENT
  Age: 41 Year
  Sex: Female
  Weight: 62.59 kg

DRUGS (3)
  1. AUBAGIO [Suspect]
     Active Substance: TERIFLUNOMIDE
     Indication: MULTIPLE SCLEROSIS
     Route: 048
     Dates: start: 20130128
  2. CLARITIN [Concomitant]
     Active Substance: LORATADINE
     Indication: HYPERSENSITIVITY
     Dates: start: 2000
  3. LYRICA [Concomitant]
     Active Substance: PREGABALIN
     Indication: NEURALGIA
     Dates: start: 2007

REACTIONS (10)
  - Trigeminal neuralgia [Recovering/Resolving]
  - Rash [Unknown]
  - Alopecia [Recovered/Resolved]
  - Hypertension [Not Recovered/Not Resolved]
  - Dysarthria [Unknown]
  - Gallbladder disorder [Not Recovered/Not Resolved]
  - Menstruation irregular [Recovered/Resolved]
  - Migraine [Unknown]
  - Pruritus [Unknown]
  - Vomiting [Unknown]

NARRATIVE: CASE EVENT DATE: 201301
